APPROVED DRUG PRODUCT: EZETIMIBE AND SIMVASTATIN
Active Ingredient: EZETIMIBE; SIMVASTATIN
Strength: 10MG;10MG
Dosage Form/Route: TABLET;ORAL
Application: A211663 | Product #001
Applicant: SCIEGEN PHARMACEUTICALS INC
Approved: Dec 10, 2024 | RLD: No | RS: No | Type: DISCN